FAERS Safety Report 6097593-8 (Version None)
Quarter: 2009Q1

REPORT INFORMATION
  Report Type: 
  Country: None (occurrence: None)
  Receive Date: 20090227
  Receipt Date: 20090223
  Transmission Date: 20090719
  Serious: No
  Sender: FDA-Public Use
  Company Number: A0760456A

PATIENT
  Age: 54 Year
  Sex: Female

DRUGS (4)
  1. IMITREX [Suspect]
     Indication: MIGRAINE
     Dosage: 6MG AS REQUIRED
     Route: 058
     Dates: start: 19981201
  2. GSK AUTOINJECTOR [Suspect]
  3. NADOLOL [Concomitant]
  4. ASPIRIN [Concomitant]

REACTIONS (3)
  - CONTUSION [None]
  - PAIN [None]
  - PRODUCT QUALITY ISSUE [None]
